FAERS Safety Report 7113229-9 (Version None)
Quarter: 2010Q4

REPORT INFORMATION
  Report Type: 
  Country: None (occurrence: None)
  Receive Date: 20101119
  Receipt Date: 20100115
  Transmission Date: 20110411
  Serious: No
  Sender: FDA-Public Use
  Company Number: A0839800A

PATIENT
  Sex: Male

DRUGS (1)
  1. WELLBUTRIN SR [Suspect]
     Dosage: 150U UNKNOWN
     Route: 065

REACTIONS (1)
  - SEXUAL DYSFUNCTION [None]
